FAERS Safety Report 8479375-2 (Version None)
Quarter: 2012Q2

REPORT INFORMATION
  Report Type: 
  Country: None (occurrence: None)
  Receive Date: 20120629
  Receipt Date: 20110915
  Transmission Date: 20120825
  Serious: Yes (Hospitalization, Other)
  Sender: FDA-Public Use
  Company Number: US-GENZYME-THYM-1002601

PATIENT
  Sex: Female

DRUGS (2)
  1. THYMOGLOBULIN [Suspect]
     Indication: PROPHYLAXIS AGAINST TRANSPLANT REJECTION
     Dosage: 100 MG, UNK
     Dates: start: 20110708, end: 20110708
  2. THYMOGLOBULIN [Suspect]
     Dosage: 110 MG, UNK
     Dates: start: 20110708, end: 20110708

REACTIONS (2)
  - DYSPNOEA [None]
  - HYPOXIA [None]
